FAERS Safety Report 13457267 (Version 3)
Quarter: 2017Q3

REPORT INFORMATION
  Report Type: Spontaneous
  Country: DE (occurrence: DE)
  Receive Date: 20170419
  Receipt Date: 20170804
  Transmission Date: 20171127
  Serious: Yes (Other)
  Sender: FDA-Public Use
  Company Number: DE-TEVA-760522GER

PATIENT
  Sex: Male
  Weight: 94 kg

DRUGS (6)
  1. PANTOPRAZOL-RATIOPHARM 40 MG [Suspect]
     Active Substance: PANTOPRAZOLE SODIUM
     Dosage: 80 MILLIGRAM DAILY;
     Route: 048
     Dates: start: 2016, end: 2017
  2. METOPROLOLSUCCINAT - 1A PHARMA [Concomitant]
     Dosage: 1/2 - 0 - 0
  3. PANTOPRAZOL-RATIOPHARM 40 MG [Suspect]
     Active Substance: PANTOPRAZOLE SODIUM
     Dosage: 40 MILLIGRAM DAILY;
     Route: 048
     Dates: start: 2010, end: 2016
  4. LOSARTAN 1A PHARMA [Concomitant]
     Dosage: 1 DOSAGE FORMS DAILY;
  5. ASS 100MG HEXAL [Concomitant]
     Dosage: 100 MILLIGRAM DAILY;
  6. L-THYROX HEXAL [Concomitant]
     Active Substance: LEVOTHYROXINE SODIUM
     Dosage: 1 DOSAGE FORMS DAILY;

REACTIONS (31)
  - Blood magnesium decreased [Recovered/Resolved]
  - Skin erosion [Recovered/Resolved]
  - Back pain [Recovered/Resolved]
  - Diarrhoea [Recovered/Resolved]
  - Lipids increased [Recovered/Resolved]
  - Visual impairment [Recovered/Resolved]
  - Peripheral vascular disorder [Recovered/Resolved]
  - Abdominal pain [Recovered/Resolved]
  - Abdominal distension [Recovered/Resolved]
  - Fatigue [Recovered/Resolved]
  - Sleep disorder [Recovered/Resolved]
  - Asthenia [Recovered/Resolved]
  - General physical health deterioration [Recovered/Resolved]
  - Vomiting [Recovered/Resolved]
  - Haematemesis [Recovered/Resolved]
  - Hypoaesthesia [Not Recovered/Not Resolved]
  - Haematochezia [Recovered/Resolved]
  - Dry mouth [Recovered/Resolved]
  - Rash [Recovered/Resolved]
  - Vitamin B12 deficiency [Recovered/Resolved]
  - Malaise [Recovered/Resolved]
  - Haemorrhage [Recovered/Resolved]
  - Pallor [Recovered/Resolved]
  - Constipation [Recovered/Resolved]
  - Arthralgia [Recovered/Resolved]
  - Burning sensation [Not Recovered/Not Resolved]
  - Epistaxis [Recovered/Resolved]
  - Myalgia [Recovered/Resolved]
  - Paraesthesia [Not Recovered/Not Resolved]
  - Nausea [Recovered/Resolved]
  - Vision blurred [Recovered/Resolved]
